FAERS Safety Report 8574815-2 (Version None)
Quarter: 2012Q3

REPORT INFORMATION
  Report Type: 
  Country: None (occurrence: None)
  Receive Date: 20120807
  Receipt Date: 20120727
  Transmission Date: 20120928
  Serious: Yes (Other)
  Sender: FDA-Public Use
  Company Number: JP-VERTEX PHARMACEUTICALS INC.-AE-2012-011242

PATIENT
  Age: 62 Year
  Sex: Male

DRUGS (9)
  1. PEGINTERFERON ALFA-2B [Concomitant]
     Route: 058
     Dates: start: 20120612
  2. EPADEL S [Concomitant]
     Route: 048
  3. CLARITIN REDITABS [Concomitant]
     Route: 048
  4. HERBESSER R CAPSULES [Concomitant]
     Route: 048
  5. LIVALO [Concomitant]
     Route: 048
  6. FEROTYM [Concomitant]
     Route: 048
  7. TELAVIC (TELAPREVIR) [Suspect]
     Indication: HEPATITIS C
     Route: 048
     Dates: start: 20120612
  8. RIBAVIRIN [Concomitant]
     Indication: HEPATITIS C
     Route: 048
     Dates: start: 20120612, end: 20120701
  9. RIBAVIRIN [Concomitant]
     Route: 048
     Dates: start: 20120702

REACTIONS (2)
  - ANAEMIA [None]
  - RASH [None]
